FAERS Safety Report 17117611 (Version 1)
Quarter: 2019Q4

REPORT INFORMATION
  Report Type: Spontaneous
  Country: US (occurrence: US)
  Receive Date: 20191205
  Receipt Date: 20191205
  Transmission Date: 20200122
  Serious: No
  Sender: FDA-Public Use
  Company Number: US-BIOCODEX SA-201901209

PATIENT

DRUGS (1)
  1. DIACOMIT [Suspect]
     Active Substance: STIRIPENTOL
     Indication: PRODUCT USED FOR UNKNOWN INDICATION
     Dosage: 625 MG EVERY MORNING (2.5 CAPSULES) AND 750 MG EVERY EVENING (3 CAPSULES)
     Route: 048
     Dates: start: 20190521

REACTIONS (2)
  - Wrong technique in product usage process [Unknown]
  - Infection [Unknown]
